FAERS Safety Report 19491319 (Version 3)
Quarter: 2021Q3

REPORT INFORMATION
  Report Type: Spontaneous
  Country: IT (occurrence: IT)
  Receive Date: 20210705
  Receipt Date: 20210820
  Transmission Date: 20211014
  Serious: Yes (Hospitalization)
  Sender: FDA-Public Use
  Company Number: IT-SA-2021SA212354

PATIENT
  Age: 70 Year
  Sex: Male

DRUGS (7)
  1. LUCENT [Concomitant]
     Dosage: UNK
     Route: 065
  2. NALAPRES [Concomitant]
     Dosage: 20 MG + 12.5 MG TABLETS
     Route: 065
  3. COMIRNATY [Concomitant]
     Active Substance: TOZINAMERAN
     Dosage: 1 DF
     Route: 048
     Dates: start: 20210528, end: 20210528
  4. CLOPIDOGREL BISULFATE. [Suspect]
     Active Substance: CLOPIDOGREL BISULFATE
     Dosage: 1 DF
     Route: 048
  5. LUCEN [ESOMEPRAZOLE MAGNESIUM] [Concomitant]
     Dosage: UNK
     Route: 065
  6. SIMVASTATIN. [Concomitant]
     Active Substance: SIMVASTATIN
     Dosage: UNK
     Route: 065
  7. ACETYLSALICYLIC ACID [Suspect]
     Active Substance: ASPIRIN
     Dosage: 1 DF
     Route: 048

REACTIONS (5)
  - Conjunctival haemorrhage [Not Recovered/Not Resolved]
  - Balance disorder [Not Recovered/Not Resolved]
  - Discomfort [Not Recovered/Not Resolved]
  - Headache [Not Recovered/Not Resolved]
  - Drug interaction [Unknown]

NARRATIVE: CASE EVENT DATE: 20210605
